FAERS Safety Report 23465363 (Version 1)
Quarter: 2024Q1

REPORT INFORMATION
  Report Type: Report from Study
  Country: NL (occurrence: NL)
  Receive Date: 20240201
  Receipt Date: 20240201
  Transmission Date: 20240410
  Serious: Yes (Death, Hospitalization, Other)
  Sender: FDA-Public Use
  Company Number: NL-CELLTRION INC.-2023NL023946

PATIENT

DRUGS (3)
  1. BEVACIZUMAB [Suspect]
     Active Substance: BEVACIZUMAB
     Indication: Neoplasm
     Dosage: 1202 MG EVERY 3 WEEK (DATE OF MOST RECENT DOSE ON 25/OCT/2023.)
     Route: 042
     Dates: start: 20230913
  2. ATEZOLIZUMAB [Suspect]
     Active Substance: ATEZOLIZUMAB
     Indication: Neoplasm
     Dosage: 1200 MG, EVERY 3 WEEKS (DATE OF MOST RECENT DOSE ON 25/OCT/2023)
     Route: 042
     Dates: start: 20230913
  3. EDOXABAN [Concomitant]
     Active Substance: EDOXABAN
     Dosage: 60 MG
     Dates: start: 20230824

REACTIONS (2)
  - Neoplasm malignant [Fatal]
  - Confusional state [Not Recovered/Not Resolved]

NARRATIVE: CASE EVENT DATE: 20231103
